FAERS Safety Report 4626325-2 (Version None)
Quarter: 2005Q2

REPORT INFORMATION
  Report Type: 
  Country: None (occurrence: None)
  Receive Date: 20050325
  Receipt Date: 20050114
  Transmission Date: 20051028
  Serious: No
  Sender: FDA-Public Use
  Company Number: USA050188359

PATIENT
  Sex: Male

DRUGS (1)
  1. FORTEO [Suspect]
     Dates: end: 20050109

REACTIONS (2)
  - FEELING ABNORMAL [None]
  - HYPERCALCAEMIA [None]
